FAERS Safety Report 5790220-6 (Version None)
Quarter: 2008Q2

REPORT INFORMATION
  Report Type: 
  Country: None (occurrence: None)
  Receive Date: 20080626
  Receipt Date: 20080226
  Transmission Date: 20081010
  Serious: No
  Sender: FDA-Public Use
  Company Number: A0705668A

PATIENT
  Sex: Female

DRUGS (2)
  1. ALLI [Suspect]
  2. BIRTH CONTROL [Concomitant]

REACTIONS (5)
  - DRUG INEFFECTIVE [None]
  - DYSMENORRHOEA [None]
  - MENSTRUAL DISCOMFORT [None]
  - MENSTRUAL DISORDER [None]
  - POLYMENORRHOEA [None]
